FAERS Safety Report 8110310-2 (Version None)
Quarter: 2012Q1

REPORT INFORMATION
  Report Type: 
  Country: None (occurrence: None)
  Receive Date: 20120202
  Receipt Date: 20120126
  Transmission Date: 20120608
  Serious: Yes (Other)
  Sender: FDA-Public Use
  Company Number: IT-PFIZER INC-2012028718

PATIENT

DRUGS (4)
  1. TIGECYCLINE [Interacting]
     Dosage: 50 MG, 2X/DAY
     Route: 042
  2. AMIKACIN [Concomitant]
     Indication: OSTEOMYELITIS CHRONIC
     Dosage: 15 MG/KG, 1X/DAY
  3. PROPOFOL [Interacting]
     Indication: ANAESTHESIA
  4. TIGECYCLINE [Suspect]
     Indication: OSTEOMYELITIS CHRONIC
     Dosage: 100 MG, 1X/DAY
     Route: 042

REACTIONS (2)
  - DRUG INTERACTION [None]
  - PANCREATITIS NECROTISING [None]
